FAERS Safety Report 10548938 (Version 1)
Quarter: 2014Q4

REPORT INFORMATION
  Report Type: Spontaneous
  Country: US (occurrence: None)
  Receive Date: 20141015
  Receipt Date: 20141015
  Transmission Date: 20150529
  Serious: No
  Sender: FDA-Public Use
  Company Number: 2014US003388

PATIENT
  Sex: Female

DRUGS (3)
  1. VINCRISTINE (VINCRISTINE) [Concomitant]
     Active Substance: VINCRISTINE
  2. ICLUSIG [Suspect]
     Active Substance: PONATINIB
     Indication: PHILADELPHIA CHROMOSOME POSITIVE
     Route: 048
     Dates: start: 201405
  3. ICLUSIG [Suspect]
     Active Substance: PONATINIB
     Indication: ACUTE LYMPHOCYTIC LEUKAEMIA
     Route: 048
     Dates: start: 201405

REACTIONS (1)
  - Pregnancy of partner [None]

NARRATIVE: CASE EVENT DATE: 2014
